FAERS Safety Report 11131973 (Version 1)
Quarter: 2015Q2

REPORT INFORMATION
  Report Type: Spontaneous
  Country: DE (occurrence: None)
  Receive Date: 20150520
  Receipt Date: 20150520
  Transmission Date: 20150821
  Serious: No
  Sender: FDA-Public Use
  Company Number: DE-LHC-2015051

PATIENT
  Sex: Female

DRUGS (1)
  1. CONOXIA (OXYGEN) (OXYGEN) (VERUM) [Suspect]
     Active Substance: OXYGEN

REACTIONS (2)
  - Accidental exposure to product [None]
  - Frostbite [None]

NARRATIVE: CASE EVENT DATE: 20150424
